FAERS Safety Report 17656654 (Version 1)
Quarter: 2020Q2

REPORT INFORMATION
  Report Type: Spontaneous
  Country: CN (occurrence: CN)
  Receive Date: 20200410
  Receipt Date: 20200410
  Transmission Date: 20200713
  Serious: Yes (Death)
  Sender: FDA-Public Use
  Company Number: CN-B.I. PHARMACEUTICALS,INC./RIDGEFIELD-2020-BI-018838

PATIENT
  Age: 62 Year
  Sex: Male

DRUGS (8)
  1. GILOTRIF [Suspect]
     Active Substance: AFATINIB
     Indication: SARCOMATOID CARCINOMA OF THE LUNG
     Route: 065
  2. CRIZOTINIB [Suspect]
     Active Substance: CRIZOTINIB
     Indication: EGFR GENE MUTATION
     Route: 065
     Dates: end: 201903
  3. BLEOMYCIN [Concomitant]
     Active Substance: BLEOMYCIN SULFATE
     Indication: HODGKIN^S DISEASE
     Route: 065
     Dates: start: 201710, end: 201802
  4. GILOTRIF [Suspect]
     Active Substance: AFATINIB
     Indication: EGFR GENE MUTATION
     Route: 065
     Dates: end: 201903
  5. CRIZOTINIB [Suspect]
     Active Substance: CRIZOTINIB
     Indication: SARCOMATOID CARCINOMA OF THE LUNG
     Route: 065
     Dates: start: 201811
  6. EPIRUBICIN [Concomitant]
     Active Substance: EPIRUBICIN
     Indication: HODGKIN^S DISEASE
     Route: 065
     Dates: start: 201710, end: 201802
  7. DACARBAZINE. [Concomitant]
     Active Substance: DACARBAZINE
     Indication: HODGKIN^S DISEASE
     Route: 065
     Dates: start: 201710, end: 201802
  8. VINCRISTINE [Concomitant]
     Active Substance: VINCRISTINE
     Indication: HODGKIN^S DISEASE
     Route: 065
     Dates: start: 201710, end: 201802

REACTIONS (5)
  - Diarrhoea [Unknown]
  - Paronychia [Unknown]
  - Therapeutic product effect incomplete [Unknown]
  - Nausea [Unknown]
  - Death [Fatal]

NARRATIVE: CASE EVENT DATE: 201907
